FAERS Safety Report 9210401 (Version 1)
Quarter: 2013Q2

REPORT INFORMATION
  Report Type: Spontaneous
  Country: US (occurrence: US)
  Receive Date: 20130404
  Receipt Date: 20130404
  Transmission Date: 20140414
  Serious: Yes (Other)
  Sender: FDA-Public Use
  Company Number: PHEH2013US007622

PATIENT
  Sex: Female

DRUGS (1)
  1. TEGRETAL [Suspect]

REACTIONS (1)
  - Convulsion [Unknown]
